FAERS Safety Report 4980983-1 (Version None)
Quarter: 2006Q1

REPORT INFORMATION
  Report Type: 
  Country: None (occurrence: None)
  Receive Date: 20060223
  Receipt Date: 20051102
  Transmission Date: 20060701
  Serious: Yes (Other)
  Sender: FDA-Public Use
  Company Number: US-JNJFOC-20051002360

PATIENT
  Age: 35 Year
  Sex: Female

DRUGS (8)
  1. RISPERDAL [Suspect]
     Dosage: SEE IMAGE
     Route: 030
     Dates: start: 20050906
  2. RISPERDAL [Suspect]
     Dosage: SEE IMAGE
     Route: 030
     Dates: start: 20050923
  3. RISPERDAL [Suspect]
  4. RISPERDAL [Suspect]
  5. RISPERIDONE [Suspect]
     Dosage: SEE IMAGE
     Route: 048
     Dates: end: 20050912
  6. RISPERIDONE [Suspect]
     Dosage: SEE IMAGE
     Route: 048
     Dates: start: 20050912, end: 20050926
  7. RISPERIDONE [Suspect]
     Dosage: SEE IMAGE
     Route: 048
     Dates: start: 20050822
  8. RISPERIDONE [Suspect]
     Dosage: SEE IMAGE
     Route: 048
     Dates: start: 20050926

REACTIONS (1)
  - NEUROLEPTIC MALIGNANT SYNDROME [None]
